FAERS Safety Report 8588701-5 (Version None)
Quarter: 2012Q3

REPORT INFORMATION
  Report Type: 
  Country: None (occurrence: None)
  Receive Date: 20120813
  Receipt Date: 20120810
  Transmission Date: 20120928
  Serious: Yes (Death)
  Sender: FDA-Public Use
  Company Number: PHHY2012TH069227

PATIENT
  Sex: Male

DRUGS (1)
  1. IMATINIB MESYLATE [Suspect]
     Dosage: 600 MG
     Route: 048
     Dates: start: 20110928, end: 20111109

REACTIONS (6)
  - PYREXIA [None]
  - DYSPNOEA [None]
  - DEATH [None]
  - MELAENA [None]
  - ANAEMIA [None]
  - HAEMATOCHEZIA [None]
